FAERS Safety Report 5120288-1 (Version None)
Quarter: 2006Q4

REPORT INFORMATION
  Report Type: 
  Country: None (occurrence: None)
  Receive Date: 20061004
  Receipt Date: 20060927
  Transmission Date: 20070319
  Serious: Yes (Other)
  Sender: FDA-Public Use
  Company Number: US-BRISTOL-MYERS SQUIBB COMPANY-13523055

PATIENT

DRUGS (4)
  1. BLANOXAN [Suspect]
     Indication: HODGKIN'S DISEASE
  2. ADRIAMYCIN PFS [Concomitant]
  3. DACARBAZINE [Concomitant]
  4. VELBAN [Concomitant]

REACTIONS (7)
  - BODY TEMPERATURE INCREASED [None]
  - BRONCHOSPASM [None]
  - CHILLS [None]
  - DYSPNOEA [None]
  - HYPERTENSION [None]
  - OXYGEN SATURATION DECREASED [None]
  - WHEEZING [None]
